FAERS Safety Report 23913528 (Version 1)
Quarter: 2024Q2

REPORT INFORMATION
  Report Type: Spontaneous
  Country: US (occurrence: US)
  Receive Date: 20240529
  Receipt Date: 20240529
  Transmission Date: 20240716
  Serious: Yes (Other)
  Sender: FDA-Public Use
  Company Number: US-UCBSA-2024026178

PATIENT
  Sex: Female
  Weight: 72.109 kg

DRUGS (1)
  1. BIMZELX [Suspect]
     Active Substance: BIMEKIZUMAB-BKZX
     Indication: Psoriasis
     Dosage: 320 MILLIGRAM, EV 4 WEEKS (WEEK 0,4,8,12,16 THEN ONCE EVERY 8 WEEKS)
     Route: 058
     Dates: start: 20240418

REACTIONS (4)
  - Pelvic infection [Recovering/Resolving]
  - Syncope [Unknown]
  - Hypotension [Unknown]
  - Sinusitis [Recovered/Resolved]

NARRATIVE: CASE EVENT DATE: 20240101
